FAERS Safety Report 23666918 (Version 1)
Quarter: 2024Q1

REPORT INFORMATION
  Report Type: Spontaneous
  Country: GB (occurrence: GB)
  Receive Date: 20240325
  Receipt Date: 20240325
  Transmission Date: 20240410
  Serious: Yes (Other)
  Sender: FDA-Public Use
  Company Number: None

PATIENT
  Age: 58 Year
  Sex: Female
  Weight: 113 kg

DRUGS (2)
  1. DOXYCYCLINE [Suspect]
     Active Substance: DOXYCYCLINE
     Indication: Arthropod bite
     Dosage: 100MG P DAY - 2 ON FIRST DAY, 7 DAYS; ;
     Route: 065
     Dates: start: 20240313, end: 20240315
  2. LORATADINE [Concomitant]
     Active Substance: LORATADINE
     Indication: Hypersensitivity

REACTIONS (5)
  - Arthralgia [Recovering/Resolving]
  - Cold sweat [Recovered/Resolved]
  - Dyspnoea [Recovered/Resolved]
  - Malaise [Recovering/Resolving]
  - Heart rate [Recovering/Resolving]

NARRATIVE: CASE EVENT DATE: 20240314
